FAERS Safety Report 12660730 (Version 2)
Quarter: 2016Q3

REPORT INFORMATION
  Report Type: Spontaneous
  Country: US (occurrence: US)
  Receive Date: 20160817
  Receipt Date: 20160901
  Transmission Date: 20161109
  Serious: No
  Sender: FDA-Public Use
  Company Number: US-RELYPSA-RLY2016001136

PATIENT
  Sex: Female

DRUGS (19)
  1. PROCRIT [Concomitant]
     Active Substance: ERYTHROPOIETIN
  2. SENNA LAXATIVE [Concomitant]
     Active Substance: SENNOSIDES
  3. PREVACID [Concomitant]
     Active Substance: LANSOPRAZOLE
  4. VELTASSA [Suspect]
     Active Substance: PATIROMER
     Indication: HYPERKALAEMIA
     Dosage: 8.4 G, QD
     Route: 048
     Dates: start: 20160211
  5. EMLA [Concomitant]
     Active Substance: LIDOCAINE\PRILOCAINE
  6. ASPIRIN                            /00002701/ [Concomitant]
     Active Substance: ASPIRIN
  7. ISORBIDE [Concomitant]
     Active Substance: ISOSORBIDE
  8. MONONITRATE D^ISOSORBIDE [Concomitant]
  9. RENVELA [Concomitant]
     Active Substance: SEVELAMER CARBONATE
  10. TUMS                               /00193601/ [Concomitant]
     Active Substance: CALCIUM CARBONATE\MAGNESIUM CARBONATE\MAGNESIUM TRISILICATE
  11. MIDODRINE HCL [Concomitant]
     Active Substance: MIDODRINE HYDROCHLORIDE
  12. NEPHROCAPS                         /01801401/ [Concomitant]
  13. TYLENOL [Concomitant]
     Active Substance: ACETAMINOPHEN
  14. MIRALAX [Concomitant]
     Active Substance: POLYETHYLENE GLYCOL 3350
  15. AMARYL [Concomitant]
     Active Substance: GLIMEPIRIDE
  16. COD LIVER OIL [Concomitant]
     Active Substance: COD LIVER OIL
  17. ACETAMINOPHEN. [Concomitant]
     Active Substance: ACETAMINOPHEN
  18. ERGOCALCIFEROL. [Concomitant]
     Active Substance: ERGOCALCIFEROL
  19. PERI-COLACE [Concomitant]
     Active Substance: CASANTHRANOL\DOCUSATE SODIUM

REACTIONS (1)
  - Constipation [Unknown]

NARRATIVE: CASE EVENT DATE: 2016
